FAERS Safety Report 4489624-3 (Version None)
Quarter: 2004Q4

REPORT INFORMATION
  Report Type: 
  Country: None (occurrence: None)
  Receive Date: 20041026
  Receipt Date: 20041011
  Transmission Date: 20050328
  Serious: Yes (Hospitalization)
  Sender: FDA-Public Use
  Company Number: 2004-DE-05212GD

PATIENT
  Age: 77 Year
  Sex: Male

DRUGS (1)
  1. TAMSULOSIN               (TAMSULOSIN HYDROCHLORIDE) [Suspect]
     Dosage: (400 MCG) PO
     Route: 048

REACTIONS (4)
  - COLONIC OBSTRUCTION [None]
  - FOREIGN BODY TRAUMA [None]
  - GASTROINTESTINAL OEDEMA [None]
  - INTESTINAL ULCER [None]
